FAERS Safety Report 12906425 (Version 1)
Quarter: 2016Q4

REPORT INFORMATION
  Report Type: Spontaneous
  Country: US (occurrence: US)
  Receive Date: 20161103
  Receipt Date: 20161103
  Transmission Date: 20170207
  Serious: No
  Sender: FDA-Public Use
  Company Number: US-PFIZER INC-2016508725

PATIENT
  Age: 77 Year
  Sex: Female

DRUGS (1)
  1. SUTENT [Suspect]
     Active Substance: SUNITINIB MALATE
     Indication: GASTROINTESTINAL STROMAL TUMOUR
     Dosage: 37.5 MG, CYCLIC (3 WEEKS ON AND 1 WEEK OFF)
     Dates: start: 201605

REACTIONS (4)
  - Pain in extremity [Unknown]
  - Skin fissures [Unknown]
  - Erythema [Unknown]
  - Blister [Unknown]
